FAERS Safety Report 7038340-2 (Version None)
Quarter: 2010Q4

REPORT INFORMATION
  Report Type: 
  Country: None (occurrence: None)
  Receive Date: 20101011
  Receipt Date: 20091022
  Transmission Date: 20110411
  Serious: No
  Sender: FDA-Public Use
  Company Number: US-PFIZER INC-2009287834

PATIENT

DRUGS (1)
  1. NEURONTIN [Suspect]
     Indication: WOUND COMPLICATION
     Dosage: 300 MG AT BEDTIME, TO 1200 THREE TIMES A DAY, 1800 THREE TIMES A DAY, THEN TITRATE DOWN

REACTIONS (2)
  - DRUG ADMINISTRATION ERROR [None]
  - DRUG INEFFECTIVE [None]
